FAERS Safety Report 7892939-X (Version None)
Quarter: 2011Q4

REPORT INFORMATION
  Report Type: 
  Country: None (occurrence: None)
  Receive Date: 20111104
  Receipt Date: 20111022
  Transmission Date: 20120403
  Serious: Yes (Hospitalization, Other)
  Sender: FDA-Public Use
  Company Number: US-BAYER-201040478NA

PATIENT
  Age: 33 Year
  Sex: Female
  Weight: 84 kg

DRUGS (16)
  1. YASMIN [Suspect]
     Indication: ACNE
     Dosage: UNK UNK, UNK
     Route: 048
  2. PROZAC [Concomitant]
     Indication: DEPRESSION
  3. YAZ [Suspect]
     Indication: PREMENSTRUAL SYNDROME
  4. PROZAC [Concomitant]
     Indication: POST-TRAUMATIC STRESS DISORDER
  5. MOTRIN [Concomitant]
     Indication: GALLBLADDER DISORDER
     Dosage: 800 MG, TID
     Route: 048
  6. YAZ [Suspect]
     Indication: ACNE
     Dosage: UNK UNK, UNK
     Route: 048
  7. HYDROCODONE BITARTRATE [Concomitant]
     Indication: PAIN
     Route: 048
  8. YASMIN [Suspect]
     Indication: PREMENSTRUAL SYNDROME
  9. OXYCODONE HCL [Concomitant]
     Indication: GALLBLADDER DISORDER
     Dosage: 5 MG, QID
     Route: 048
  10. REGLAN [Concomitant]
     Dosage: UNK
     Dates: start: 20080422
  11. YASMIN [Suspect]
  12. PROZAC [Concomitant]
     Indication: PREMENSTRUAL SYNDROME
     Dosage: 20 MG, QD
     Route: 048
     Dates: start: 20010101
  13. PERCOCET [Concomitant]
     Indication: PAIN
     Route: 048
  14. BENTYL [Concomitant]
     Indication: GASTROOESOPHAGEAL REFLUX DISEASE
     Route: 048
  15. YAZ [Suspect]
  16. DEMULEN 1/35-21 [Concomitant]
     Route: 048

REACTIONS (3)
  - IRRITABLE BOWEL SYNDROME [None]
  - GALLBLADDER DISORDER [None]
  - CHOLECYSTITIS CHRONIC [None]
